FAERS Safety Report 22601188 (Version 1)
Quarter: 2023Q2

REPORT INFORMATION
  Report Type: Spontaneous
  Country: US (occurrence: US)
  Receive Date: 20230614
  Receipt Date: 20230614
  Transmission Date: 20230722
  Serious: No
  Sender: FDA-Public Use
  Company Number: US-MYLANLABS-2023M1029749

PATIENT
  Age: 57 Year
  Sex: Male
  Weight: 158.76 kg

DRUGS (1)
  1. AMLODIPINE [Suspect]
     Active Substance: AMLODIPINE BESYLATE
     Dosage: 1 DOSAGE FORM, QD (ONE TABLET, ONCE DAY)
     Route: 048
     Dates: start: 202301

REACTIONS (2)
  - Oedema [Unknown]
  - Flushing [Unknown]

NARRATIVE: CASE EVENT DATE: 20230314
